FAERS Safety Report 18750498 (Version 1)
Quarter: 2021Q1

REPORT INFORMATION
  Report Type: Report from Study
  Country: None (occurrence: US)
  Receive Date: 20210118
  Receipt Date: 20210118
  Transmission Date: 20210419
  Serious: Yes (Other)
  Sender: FDA-Public Use
  Company Number: US-ABBVIE-21K-163-3731495-00

PATIENT
  Age: 44 Year
  Sex: Female

DRUGS (1)
  1. HUMIRA [Suspect]
     Active Substance: ADALIMUMAB
     Indication: UVEITIS
     Dosage: CITRATE FREE
     Route: 058
     Dates: end: 20201225

REACTIONS (2)
  - Hernia [Unknown]
  - Cholecystectomy [Unknown]

NARRATIVE: CASE EVENT DATE: 20201230
